FAERS Safety Report 11435047 (Version 2)
Quarter: 2015Q3

REPORT INFORMATION
  Report Type: Spontaneous
  Country: CH (occurrence: AU)
  Receive Date: 20150831
  Receipt Date: 20150915
  Transmission Date: 20151125
  Serious: Yes (Other)
  Sender: FDA-Public Use
  Company Number: CH-LPDUSPRD-20150653

PATIENT
  Age: 54 Year
  Sex: Female

DRUGS (16)
  1. CARDIZEM [Concomitant]
     Active Substance: DILTIAZEM HYDROCHLORIDE
     Dosage: DOSE NOT PROVIDED
     Route: 065
  2. MINIRIN [Concomitant]
     Active Substance: DESMOPRESSIN ACETATE
     Dosage: DOSE NOT PROVIDED
     Route: 065
  3. CALCIUM [Concomitant]
     Active Substance: CALCIUM
     Dosage: DOSE NOT PROVIDED
     Route: 065
  4. TRAMAL [Concomitant]
     Active Substance: TRAMADOL
     Dosage: DOSE NOT PROVIDED
     Route: 065
  5. VITAMINE D, NOS [Concomitant]
     Dosage: DOSE NOT PROVIDED
     Route: 065
  6. CENTRUM [Concomitant]
     Active Substance: VITAMINS
     Dosage: DOSE NOT PROVIDED
     Route: 065
  7. MAGNESIUM [Concomitant]
     Active Substance: MAGNESIUM
     Dosage: DOSE NOT PROVIDED
     Route: 065
  8. FERINJECT [Suspect]
     Active Substance: FERRIC CARBOXYMALTOSE
     Dosage: 1 DOSE, NOT FURTHER SPEC
     Route: 042
     Dates: start: 20141217, end: 20141217
  9. SOMAC [Concomitant]
     Active Substance: PANTOPRAZOLE SODIUM
     Dosage: DOSE NOT PROVIDED
     Route: 065
  10. ASPIRIN. [Concomitant]
     Active Substance: ASPIRIN
     Dosage: DOSE NOT PROVIDED
     Route: 065
  11. LIPITOR [Concomitant]
     Active Substance: ATORVASTATIN CALCIUM
     Dosage: DOSE NOT PROVIDED
     Route: 065
  12. MICARDIS [Concomitant]
     Active Substance: TELMISARTAN
     Dosage: DOSE NOT PROVIDED
     Route: 065
  13. TAZAC [Concomitant]
     Dosage: DOSE NOT PROVIDED
     Route: 065
  14. THYROXINE [Concomitant]
     Active Substance: LEVOTHYROXINE
     Dosage: DOSE NOT PROVIDED
     Route: 065
  15. FISH OIL [Concomitant]
     Active Substance: FISH OIL
     Dosage: DOSE NOT PROVIDED
     Route: 065
  16. MOBIC [Concomitant]
     Active Substance: MELOXICAM
     Dosage: DOSE NOT PROVIDED
     Route: 065

REACTIONS (2)
  - Feeling cold [Unknown]
  - Limb discomfort [Unknown]

NARRATIVE: CASE EVENT DATE: 20141217
